FAERS Safety Report 25956266 (Version 1)
Quarter: 2025Q4

REPORT INFORMATION
  Report Type: Spontaneous
  Country: US (occurrence: US)
  Receive Date: 20251024
  Receipt Date: 20251024
  Transmission Date: 20260118
  Serious: No
  Sender: GILEAD
  Company Number: US-GILEAD-2025-0732772

PATIENT

DRUGS (1)
  1. TRODELVY [Suspect]
     Active Substance: SACITUZUMAB GOVITECAN-HZIY
     Indication: Triple negative breast cancer
     Dosage: UNK, 28 CYCLES OVER 21 MONTHS
     Route: 065
     Dates: start: 20231001, end: 20250701

REACTIONS (1)
  - Toxicity to various agents [Unknown]
